FAERS Safety Report 4930948-0 (Version None)
Quarter: 2006Q1

REPORT INFORMATION
  Report Type: 
  Country: None (occurrence: None)
  Receive Date: 20060227
  Receipt Date: 20060221
  Transmission Date: 20060701
  Serious: Yes (Life-Threatening, Hospitalization)
  Sender: FDA-Public Use
  Company Number: STA-AE-05-MTX-014

PATIENT
  Age: 64 Year
  Sex: Male

DRUGS (9)
  1. METHOTREXATE [Suspect]
     Indication: RHEUMATOID ARTHRITIS
     Dosage: 15 MG 1XW ORAL
     Route: 048
     Dates: start: 20041014
  2. ABATACEPT [Suspect]
     Indication: RHEUMATOID ARTHRITIS
     Dosage: IV
     Route: 042
     Dates: start: 20050323
  3. PLACEBO [Suspect]
     Indication: RHEUMATOID ARTHRITIS
     Dosage: IV
     Route: 042
     Dates: start: 20050323
  4. PREDNISONE [Concomitant]
  5. IBUPROFEN [Concomitant]
  6. RANITIDINE [Concomitant]
  7. CAPTOPRIL [Concomitant]
  8. CALCIUM CARBONATE [Concomitant]
  9. FOLIC ACID [Concomitant]

REACTIONS (3)
  - PNEUMOCYSTIS JIROVECI PNEUMONIA [None]
  - PNEUMONIA [None]
  - RESPIRATORY FAILURE [None]
